FAERS Safety Report 25426149 (Version 1)
Quarter: 2025Q2

REPORT INFORMATION
  Report Type: Spontaneous
  Country: ES (occurrence: ES)
  Receive Date: 20250612
  Receipt Date: 20250612
  Transmission Date: 20250716
  Serious: Yes (Hospitalization)
  Sender: NOVO NORDISK
  Company Number: None

PATIENT
  Age: 61 Year
  Sex: Female

DRUGS (1)
  1. RYBELSUS [Suspect]
     Active Substance: SEMAGLUTIDE
     Indication: Obesity
     Route: 048
     Dates: start: 20240404, end: 20250404

REACTIONS (2)
  - Cerebral ischaemia [Recovered/Resolved with Sequelae]
  - Product use in unapproved indication [Recovered/Resolved]

NARRATIVE: CASE EVENT DATE: 20240404
